FAERS Safety Report 7056841-8 (Version None)
Quarter: 2010Q4

REPORT INFORMATION
  Report Type: 
  Country: None (occurrence: None)
  Receive Date: 20101022
  Receipt Date: 20100722
  Transmission Date: 20110411
  Serious: No
  Sender: FDA-Public Use
  Company Number: A0871907A

PATIENT
  Age: 63 Year
  Sex: Female

DRUGS (4)
  1. DUAC [Suspect]
     Indication: ACNE
     Dosage: 1APP PER DAY
     Route: 061
     Dates: start: 20100720, end: 20100721
  2. ATENOLOL [Concomitant]
  3. LISINOPRIL [Concomitant]
  4. ALLEGRA [Concomitant]

REACTIONS (4)
  - BURNING SENSATION [None]
  - CONDITION AGGRAVATED [None]
  - HYPERSENSITIVITY [None]
  - PRURITUS [None]
